FAERS Safety Report 5728368-4 (Version None)
Quarter: 2008Q2

REPORT INFORMATION
  Report Type: 
  Country: None (occurrence: None)
  Receive Date: 20080506
  Receipt Date: 20080425
  Transmission Date: 20081010
  Serious: Yes (Other)
  Sender: FDA-Public Use
  Company Number: PHEH2008US03438

PATIENT
  Age: 83 Year
  Sex: Female
  Weight: 94.331 kg

DRUGS (4)
  1. ZOMETA [Suspect]
     Indication: METASTASES TO BONE
     Dosage: 3.3 MG, QMO
     Route: 042
     Dates: start: 20050210
  2. AREDIA [Suspect]
     Indication: METASTASES TO BONE
     Dosage: 90 MG, QMO
     Route: 042
     Dates: start: 20040617, end: 20050113
  3. NAVELBINE [Concomitant]
     Indication: BREAST CANCER METASTATIC
     Dosage: 35 MG, WEEKLY
     Route: 042
     Dates: start: 20080123
  4. DEXAMETHASONE [Concomitant]
     Indication: PREMEDICATION
     Dosage: 5 MG, QWK
     Route: 042
     Dates: start: 20080123

REACTIONS (6)
  - ARTHRITIS [None]
  - DISCOMFORT [None]
  - FRACTURE [None]
  - OSTEONECROSIS [None]
  - PAIN IN EXTREMITY [None]
  - SLEEP DISORDER [None]
